FAERS Safety Report 8265678-3 (Version None)
Quarter: 2012Q2

REPORT INFORMATION
  Report Type: 
  Country: None (occurrence: None)
  Receive Date: 20120404
  Receipt Date: 20120322
  Transmission Date: 20120825
  Serious: Yes (Other)
  Sender: FDA-Public Use
  Company Number: 2012SA019538

PATIENT
  Sex: Male

DRUGS (1)
  1. MENTHOL  /UNKNOWN / UNKNOWN [Suspect]
     Dosage: ONCE;TOPICAL
     Route: 061
     Dates: start: 20120320, end: 20120320

REACTIONS (3)
  - THERMAL BURN [None]
  - ERYTHEMA [None]
  - PAIN [None]
